FAERS Safety Report 5152869-3 (Version None)
Quarter: 2006Q4

REPORT INFORMATION
  Report Type: 
  Country: None (occurrence: None)
  Receive Date: 20061117
  Receipt Date: 20061106
  Transmission Date: 20070319
  Serious: Yes (Other)
  Sender: FDA-Public Use
  Company Number: PHNU2006DE03631

PATIENT
  Age: 70 Year
  Sex: Female
  Weight: 72 kg

DRUGS (1)
  1. AREDIA [Suspect]
     Indication: BREAST CANCER FEMALE
     Dosage: 90 MG, QMO
     Route: 042
     Dates: start: 20000401

REACTIONS (5)
  - BIOPSY SITE UNSPECIFIED ABNORMAL [None]
  - BONE DISORDER [None]
  - OSTEOMYELITIS [None]
  - OSTEOTOMY [None]
  - TOOTH EXTRACTION [None]
